FAERS Safety Report 15463682 (Version 4)
Quarter: 2019Q1

REPORT INFORMATION
  Report Type: Spontaneous
  Country: DK (occurrence: DK)
  Receive Date: 20181004
  Receipt Date: 20190128
  Transmission Date: 20190417
  Serious: Yes (Other)
  Sender: FDA-Public Use
  Company Number: PHHY2017DK140653

PATIENT
  Age: 69 Year
  Sex: Female
  Weight: 75 kg

DRUGS (8)
  1. TRADOLAN [Concomitant]
     Active Substance: TRAMADOL
     Dosage: 100 MG, QD
     Route: 048
     Dates: start: 20170113
  2. CALCIUM [Concomitant]
     Active Substance: CALCIUM
     Indication: PRODUCT USED FOR UNKNOWN INDICATION
     Dosage: 2 DF, QD (STRENGTH: 400+38 MG/UG)
     Route: 048
  3. PANODIL [Concomitant]
     Active Substance: ACETAMINOPHEN
     Indication: PAIN
     Dosage: 1000 MG, UNK
     Route: 048
  4. TRADOLAN [Concomitant]
     Active Substance: TRAMADOL
     Indication: PRODUCT USED FOR UNKNOWN INDICATION
     Dosage: 100 MG, QD
     Route: 048
  5. CALCIUM [Concomitant]
     Active Substance: CALCIUM
     Dosage: 2 DF, QD (STRENGTH: 400+38 MG/UG)
     Route: 048
     Dates: start: 20170113
  6. MICARDIS [Concomitant]
     Active Substance: TELMISARTAN
     Indication: HYPERTENSION
     Dosage: 20 MG, QD
     Route: 048
     Dates: start: 20131023
  7. COSENTYX [Suspect]
     Active Substance: SECUKINUMAB
     Indication: ARTHRITIS
     Dosage: 2 DF, QW (300 MG S.C, IN WEEKS 0, 1, 2 AND 3, FOLLOWED BY MONTHLY MAINTENANCE DOSE)
     Route: 058
     Dates: start: 20170113
  8. MEDROL [Concomitant]
     Active Substance: METHYLPREDNISOLONE
     Indication: ADRENOCORTICAL STEROID THERAPY
     Dosage: 20 MG, QD
     Route: 048
     Dates: start: 20151203

REACTIONS (11)
  - Angioedema [Unknown]
  - Diarrhoea [Unknown]
  - Infective iritis [Recovered/Resolved]
  - Night sweats [Unknown]
  - Psoriatic arthropathy [Recovered/Resolved]
  - Visual impairment [Recovered/Resolved]
  - Cough [Unknown]
  - Stomatitis [Unknown]
  - Fatigue [Unknown]
  - Weight increased [Not Recovered/Not Resolved]
  - Infection [Unknown]

NARRATIVE: CASE EVENT DATE: 2017
